FAERS Safety Report 18483533 (Version 1)
Quarter: 2020Q4

REPORT INFORMATION
  Report Type: Spontaneous
  Country: US (occurrence: US)
  Receive Date: 20201109
  Receipt Date: 20201109
  Transmission Date: 20210114
  Serious: No
  Sender: FDA-Public Use
  Company Number: US-ROCHE-2410476

PATIENT
  Age: 15 Year
  Sex: Female

DRUGS (1)
  1. PULMOZYME [Suspect]
     Active Substance: DORNASE ALFA
     Indication: PRODUCT USED FOR UNKNOWN INDICATION
     Dosage: FORM STRENGTH 1MG/ML AMPOULES REFREIGERATED, DOSE - 2.5MG/2.5ML
     Route: 065
     Dates: start: 20030901

REACTIONS (3)
  - Unevaluable event [Unknown]
  - Chest pain [Unknown]
  - Dehydration [Unknown]

NARRATIVE: CASE EVENT DATE: 20190812
